FAERS Safety Report 8575971 (Version 2)
Quarter: 2014Q1

REPORT INFORMATION
  Report Type: Spontaneous
  Country: US (occurrence: None)
  Receive Date: 20120323
  Receipt Date: 20130305
  Transmission Date: 20141002
  Serious: Yes (Life-Threatening, Hospitalization, Other)
  Sender: FDA-Public Use
  Company Number: 163-21880-11111933

PATIENT
  Age: 81 Year
  Sex: Female
  Weight: 100.7 kg

DRUGS (17)
  1. REVLIMID [Suspect]
     Indication: PLASMA CELL MYELOMA
     Dosage: 5 MG, Q 48H X 21 DAYS, PO
     Route: 048
     Dates: start: 20110622, end: 201109
  2. VERAPAMIL SR (VERAPAMIL HYDROCHLORIDE) [Concomitant]
  3. ARANESP [Concomitant]
  4. DIOVAN [Concomitant]
  5. METOPROLOL SUCCINATE XL (METOPROLOL SUCCINATE) [Concomitant]
  6. ASPIRIN (ACETYLSALICYLIC ACID) [Concomitant]
  7. SIMVASTATIN [Concomitant]
  8. DEXAMETHASONE (DEXAMETHASONE) [Concomitant]
  9. LASIX [Concomitant]
  10. IMDUR [Concomitant]
  11. ALBUTEROL (SALBUTAMOL) (INHALANT) [Concomitant]
  12. TYLENOL (PARACETAMOL) [Concomitant]
  13. HYDRALAZINE (HYDRALAZINE) (TABLETS) [Concomitant]
  14. IVIG (IMMUNOGLOBULIN) (INJECTION) [Concomitant]
  15. DARBEPOETIN ALFA (DARBEPOETIN ALFA) (INJECTION) [Concomitant]
  16. ASA (ACETYLSALICYLIC ACID) [Concomitant]
  17. PPI-2458 [Concomitant]

REACTIONS (2)
  - Deep vein thrombosis [None]
  - Gastrointestinal haemorrhage [None]
